FAERS Safety Report 5864276-6 (Version None)
Quarter: 2008Q3

REPORT INFORMATION
  Report Type: 
  Country: None (occurrence: None)
  Receive Date: 20080829
  Receipt Date: 20080820
  Transmission Date: 20090109
  Serious: Yes (Other)
  Sender: FDA-Public Use
  Company Number: GB-AMGEN-US303683

PATIENT
  Age: 63 Year
  Sex: Male
  Weight: 70 kg

DRUGS (6)
  1. ENBREL [Suspect]
     Indication: DRUG USE FOR UNKNOWN INDICATION
     Dosage: UNKNOWN
     Route: 058
     Dates: start: 20080101
  2. WARFARIN SODIUM [Concomitant]
     Dosage: UNKNOWN
     Route: 065
  3. LOSARTAN POTASSIUM [Concomitant]
     Dosage: UNKNOWN
     Route: 065
  4. MOXONIDINE [Concomitant]
     Dosage: UNKNOWN
     Route: 065
  5. ATORVASTATIN [Concomitant]
     Dosage: UNKNOWN
     Route: 065
  6. FUROSEMIDE [Concomitant]
     Dosage: UNKNOWN
     Route: 065

REACTIONS (2)
  - DYSPNOEA [None]
  - WHEEZING [None]
